FAERS Safety Report 14686266 (Version 1)
Quarter: 2018Q1

REPORT INFORMATION
  Report Type: Spontaneous
  Country: US (occurrence: US)
  Receive Date: 20180326
  Receipt Date: 20180326
  Transmission Date: 20180509
  Serious: Yes (Other)
  Sender: FDA-Public Use
  Company Number: None

PATIENT
  Age: 46 Year
  Sex: Female
  Weight: 49.5 kg

DRUGS (2)
  1. TYLENOL/ASPIRIN [Concomitant]
  2. HYDROXYCHLOROQUINE 200MG TAB [Suspect]
     Active Substance: HYDROXYCHLOROQUINE SULFATE
     Indication: ARTHRITIS
     Dosage: ?          QUANTITY:30 TABLET(S);?
     Route: 048
     Dates: start: 20180317, end: 20180326

REACTIONS (8)
  - Joint swelling [None]
  - Drug ineffective [None]
  - Condition aggravated [None]
  - Product substitution issue [None]
  - Pain [None]
  - Seizure [None]
  - Product quality issue [None]
  - Autoimmune disorder [None]

NARRATIVE: CASE EVENT DATE: 20180326
